FAERS Safety Report 4603958-0 (Version None)
Quarter: 2005Q1

REPORT INFORMATION
  Report Type: 
  Country: None (occurrence: None)
  Receive Date: 20050310
  Receipt Date: 20050204
  Transmission Date: 20050727
  Serious: Yes (Hospitalization)
  Sender: FDA-Public Use
  Company Number: 2005002060

PATIENT
  Age: 75 Year
  Sex: Female
  Weight: 80 kg

DRUGS (1)
  1. QUILONUM RETARD [Suspect]
     Dosage: 1TAB TWICE PER DAY
     Route: 048
     Dates: end: 20050131

REACTIONS (5)
  - ATRIAL FIBRILLATION [None]
  - CONFUSIONAL STATE [None]
  - PSYCHOTIC DISORDER [None]
  - SOMNOLENCE [None]
  - TACHYARRHYTHMIA [None]
